FAERS Safety Report 25596708 (Version 2)
Quarter: 2025Q3

REPORT INFORMATION
  Report Type: Spontaneous
  Country: JP (occurrence: JP)
  Receive Date: 20250723
  Receipt Date: 20250806
  Transmission Date: 20251021
  Serious: Yes (Hospitalization, Disabling, Other)
  Sender: STRIDES
  Company Number: None

PATIENT
  Age: 8 Year
  Sex: Female

DRUGS (6)
  1. PREDNISOLONE [Interacting]
     Active Substance: PREDNISOLONE
     Indication: B precursor type acute leukaemia
     Route: 065
  2. DEXAMETHASONE [Interacting]
     Active Substance: DEXAMETHASONE
     Indication: B precursor type acute leukaemia
     Route: 065
  3. DEXAMETHASONE [Interacting]
     Active Substance: DEXAMETHASONE
     Route: 065
  4. DEXAMETHASONE [Interacting]
     Active Substance: DEXAMETHASONE
     Route: 065
  5. ASPARAGINASE [Interacting]
     Active Substance: ASPARAGINASE
     Indication: B precursor type acute leukaemia
     Route: 065
  6. ASPARAGINASE [Interacting]
     Active Substance: ASPARAGINASE
     Route: 065

REACTIONS (6)
  - Osteonecrosis [Recovering/Resolving]
  - Osteoporosis [Recovering/Resolving]
  - Foot fracture [Recovering/Resolving]
  - Drug interaction [Unknown]
  - Fractured sacrum [Recovering/Resolving]
  - Upper limb fracture [Recovering/Resolving]
